FAERS Safety Report 4747647-0 (Version None)
Quarter: 2005Q3

REPORT INFORMATION
  Report Type: 
  Country: None (occurrence: None)
  Receive Date: 20050818
  Receipt Date: 20050411
  Transmission Date: 20060218
  Serious: No
  Sender: FDA-Public Use
  Company Number: US-BRISTOL-MYERS SQUIBB COMPANY-12928123

PATIENT
  Age: 50 Year
  Sex: Female
  Weight: 125 kg

DRUGS (3)
  1. TEQUIN [Suspect]
     Indication: EAR INFECTION
     Dates: start: 20050214
  2. PRILOSEC [Concomitant]
  3. BISOPROLOL [Concomitant]
     Indication: HYPERTENSION

REACTIONS (3)
  - DEAFNESS [None]
  - MIDDLE EAR EFFUSION [None]
  - TINNITUS [None]
